FAERS Safety Report 10154591 (Version 1)
Quarter: 2014Q2

REPORT INFORMATION
  Report Type: Spontaneous
  Country: US (occurrence: None)
  Receive Date: 20140505
  Receipt Date: 20140505
  Transmission Date: 20141212
  Serious: Yes (Hospitalization)
  Sender: FDA-Public Use
  Company Number: None

PATIENT
  Age: 39 Year
  Sex: Male

DRUGS (9)
  1. HALOPERIDOL [Suspect]
     Indication: DELIRIUM
     Route: 048
     Dates: start: 20121121, end: 20121122
  2. HEPARIN [Concomitant]
  3. ASPIRIN [Concomitant]
  4. FUROSEMIDE [Concomitant]
  5. HYDRALAZINE [Concomitant]
  6. ISOSORBIDE [Concomitant]
  7. DINITRATE [Concomitant]
  8. LORAZEPAM [Concomitant]
  9. METROPROLOL TARTRATE [Concomitant]

REACTIONS (7)
  - Renal injury [None]
  - Liver injury [None]
  - Haematuria [None]
  - Delirium [None]
  - Supraventricular tachycardia [None]
  - Cardiac arrest [None]
  - Torsade de pointes [None]
